FAERS Safety Report 6348554-2 (Version None)
Quarter: 2009Q3

REPORT INFORMATION
  Report Type: 
  Country: None (occurrence: None)
  Receive Date: 20090911
  Receipt Date: 20090904
  Transmission Date: 20100115
  Serious: Yes (Other)
  Sender: FDA-Public Use
  Company Number: US-JNJFOC-20090902985

PATIENT
  Age: 61 Year
  Sex: Female
  Weight: 61.24 kg

DRUGS (11)
  1. IMODIUM MULTI-SYMPTOM RELIEF [Suspect]
     Route: 048
  2. IMODIUM MULTI-SYMPTOM RELIEF [Suspect]
     Indication: COLITIS
     Route: 048
  3. SYNTHROID [Concomitant]
     Indication: HYPOTHYROIDISM
  4. ATENOLOL [Concomitant]
     Indication: HYPERTENSION
  5. LISINOPRIL [Concomitant]
     Indication: HYPERTENSION
  6. ASPIRIN [Concomitant]
     Indication: ANTICOAGULANT THERAPY
  7. EVISTA [Concomitant]
     Indication: OSTEOPOROSIS
  8. LEXAPRO [Concomitant]
     Indication: DEPRESSION
  9. LIPITOR [Concomitant]
     Indication: CARDIAC DISORDER
  10. WELCHOL [Concomitant]
     Indication: ABNORMAL FAECES
  11. CLONIDINE [Concomitant]
     Indication: HYPERTENSION

REACTIONS (5)
  - CHOKING [None]
  - DYSPHAGIA [None]
  - DYSPNOEA [None]
  - INAPPROPRIATE SCHEDULE OF DRUG ADMINISTRATION [None]
  - WRONG TECHNIQUE IN DRUG USAGE PROCESS [None]
